FAERS Safety Report 8777586 (Version 2)
Quarter: 2012Q4

REPORT INFORMATION
  Report Type: 
  Country: GB (occurrence: GB)
  Receive Date: 20120911
  Receipt Date: 20121003
  Transmission Date: 20130627
  Serious: Yes (Other)
  Sender: FDA-Public Use
  Company Number: PHFR2012GB004884

PATIENT
  Age: 28 Year
  Sex: Male

DRUGS (3)
  1. CLOZARIL [Suspect]
     Indication: SCHIZOPHRENIA
     Route: 048
     Dates: start: 20120706
  2. CLOZARIL [Suspect]
     Dosage: 400 mg daily
     Route: 048
     Dates: start: 20120709
  3. CITALOPRAM [Concomitant]
     Indication: DEPRESSION
     Dosage: 20 mg daily
     Route: 048
     Dates: start: 20120910

REACTIONS (7)
  - Intentional self-injury [Recovered/Resolved]
  - Haemorrhage [Recovered/Resolved]
  - Limb injury [Recovered/Resolved]
  - Syncope [Unknown]
  - Dizziness [Unknown]
  - Neutrophil count increased [Unknown]
  - Eosinophil count decreased [Unknown]
